FAERS Safety Report 17242932 (Version 1)
Quarter: 2020Q1

REPORT INFORMATION
  Report Type: Spontaneous
  Country: US (occurrence: US)
  Receive Date: 20200107
  Receipt Date: 20200107
  Transmission Date: 20200409
  Serious: No
  Sender: FDA-Public Use
  Company Number: US-ELI_LILLY_AND_COMPANY-US201912006555

PATIENT
  Age: 58 Year
  Sex: Male

DRUGS (1)
  1. TALTZ [Suspect]
     Active Substance: IXEKIZUMAB
     Indication: PSORIASIS
     Dosage: 80 MG, OTHER 4 WEEKS
     Route: 065

REACTIONS (3)
  - Tendonitis [Recovered/Resolved]
  - Plantar fasciitis [Recovered/Resolved]
  - Enthesopathy [Unknown]

NARRATIVE: CASE EVENT DATE: 20191111
